FAERS Safety Report 24897778 (Version 1)
Quarter: 2025Q1

REPORT INFORMATION
  Report Type: Spontaneous
  Country: FI (occurrence: FI)
  Receive Date: 20250129
  Receipt Date: 20250129
  Transmission Date: 20250408
  Serious: Yes (Death, Other)
  Sender: CELLTRION
  Company Number: None

PATIENT

DRUGS (5)
  1. BEVACIZUMAB [Suspect]
     Active Substance: BEVACIZUMAB
     Indication: Peritoneal mesothelioma malignant
     Route: 042
     Dates: start: 20240130, end: 20240419
  2. PEMETREXED [Suspect]
     Active Substance: PEMETREXED
     Indication: Peritoneal mesothelioma malignant
     Route: 042
     Dates: start: 20240109, end: 20240712
  3. CISPLATIN [Suspect]
     Active Substance: CISPLATIN
     Indication: Peritoneal mesothelioma malignant
     Route: 042
     Dates: start: 20240109, end: 20240712
  4. NIVOLUMAB [Suspect]
     Active Substance: NIVOLUMAB
     Indication: Peritoneal mesothelioma malignant
     Route: 042
     Dates: start: 20230905, end: 20231109
  5. IPILIMUMAB [Suspect]
     Active Substance: IPILIMUMAB
     Indication: Peritoneal mesothelioma malignant
     Route: 042
     Dates: start: 20230905, end: 20231109

REACTIONS (6)
  - Discoloured vomit [Fatal]
  - Nausea [Fatal]
  - Abdominal pain [Fatal]
  - Constipation [Fatal]
  - Vomiting [Fatal]
  - Intestinal perforation [Fatal]

NARRATIVE: CASE EVENT DATE: 20240101
